FAERS Safety Report 8534393-0 (Version None)
Quarter: 2012Q3

REPORT INFORMATION
  Report Type: 
  Country: None (occurrence: None)
  Receive Date: 20120724
  Receipt Date: 20120723
  Transmission Date: 20120928
  Serious: Yes (Other)
  Sender: FDA-Public Use
  Company Number: PHFR2012GB002584

PATIENT
  Sex: Female

DRUGS (16)
  1. LISINOPRIL [Concomitant]
     Dosage: 2.5 MG, UNK
  2. SIMVASTATIN [Concomitant]
     Dosage: 20 MG, NOCTE
  3. BETAHISTINE HYDROCHLORIDE [Concomitant]
     Dosage: 16 MG, TID
  4. TRAMADOL HCL [Concomitant]
     Dosage: 50-100 MG QDS
  5. OMEPRAZOLE [Concomitant]
     Dosage: 20 MG, UNK
     Route: 048
  6. RANITIDINE [Concomitant]
     Dosage: 150 MG, BID
  7. VITAMIN B NOS [Concomitant]
     Dosage: UNK UKN, UNK
  8. CLOZARIL [Suspect]
     Dosage: 150 MG, (50 MG, 100 MG)
     Route: 048
     Dates: start: 20070801
  9. LEVOTHYROXINE SODIUM [Concomitant]
     Dosage: 100 MG, UNK
  10. PROPRANOLOL [Concomitant]
     Dosage: 10 MG, TID
  11. CLOZARIL [Suspect]
     Indication: SCHIZOAFFECTIVE DISORDER
     Dosage: UNK UKN, UNK
     Route: 048
     Dates: start: 20070727
  12. ASCORBIC ACID [Concomitant]
     Dosage: 100 MG, UNK
     Route: 048
  13. VESICARE [Concomitant]
     Dosage: 5 MG, QD
  14. METFORMIN HYDROCHLORIDE [Concomitant]
     Dosage: 500 MG, TID
  15. FERROUS FUMARATE [Concomitant]
     Dosage: 210 MG, BID
  16. ACETAMINOPHEN [Concomitant]
     Dosage: 1000 MG, TID PRN

REACTIONS (2)
  - ANAEMIA [None]
  - ULCER [None]
